FAERS Safety Report 6979694-2 (Version None)
Quarter: 2010Q3

REPORT INFORMATION
  Report Type: 
  Country: None (occurrence: None)
  Receive Date: 20100908
  Receipt Date: 20100825
  Transmission Date: 20110219
  Serious: Yes (Other)
  Sender: FDA-Public Use
  Company Number: 1000015484

PATIENT
  Age: 71 Year
  Sex: Female

DRUGS (2)
  1. FOSFOMYCIN (FOSFOMYCIN TROMETAMOL (GRANULATE) [Suspect]
     Indication: URINARY TRACT INFECTION
     Dosage: 3 G (3 GM, 1 IN 1 D), ORAL
     Route: 048
     Dates: start: 20100703, end: 20100703
  2. BISOPROLOL FUMARATE [Concomitant]

REACTIONS (3)
  - ABDOMINAL PAIN [None]
  - DIARRHOEA [None]
  - FLATULENCE [None]
